FAERS Safety Report 9642902 (Version 2)
Quarter: 2013Q4

REPORT INFORMATION
  Report Type: Report from Study
  Country: ES (occurrence: ES)
  Receive Date: 20131024
  Receipt Date: 20131024
  Transmission Date: 20140711
  Serious: Yes (Other)
  Sender: FDA-Public Use
  Company Number: PHHY2013ES110462

PATIENT
  Age: 45 Year
  Sex: Male

DRUGS (5)
  1. LEPONEX [Suspect]
     Indication: LOSS OF CONSCIOUSNESS
     Dosage: 700 MG, QD
     Route: 048
     Dates: end: 201308
  2. LEPONEX [Suspect]
     Dosage: 600 MG, QD
     Route: 048
     Dates: start: 201308, end: 201309
  3. LEPONEX [Suspect]
     Dosage: 500 MG, OD
     Route: 048
     Dates: start: 201309
  4. ETUMINE [Concomitant]
     Dosage: UNK
  5. DUMIROX [Concomitant]
     Dosage: UNK

REACTIONS (2)
  - Withdrawal syndrome [Unknown]
  - Hypotension [Recovered/Resolved]
